FAERS Safety Report 6879479-1 (Version None)
Quarter: 2010Q3

REPORT INFORMATION
  Report Type: 
  Country: None (occurrence: None)
  Receive Date: 20100728
  Receipt Date: 20100719
  Transmission Date: 20110219
  Serious: Yes (Other)
  Sender: FDA-Public Use
  Company Number: GXKR2010GB08052

PATIENT
  Age: 51 Year
  Sex: Male

DRUGS (5)
  1. BISOPROLOL (NGX) [Suspect]
     Indication: MYOCARDIAL ISCHAEMIA
     Dosage: 1.25 MG, UNK
     Route: 048
     Dates: start: 20100617, end: 20100630
  2. ACETYLSALICYLIC ACID SRT [Concomitant]
     Indication: MYOCARDIAL ISCHAEMIA
     Dosage: 75 MG, QD
     Route: 048
     Dates: start: 20090417
  3. DILTIAZEM [Concomitant]
     Indication: MYOCARDIAL ISCHAEMIA
     Dosage: 120 MG, BID
     Route: 048
     Dates: start: 20090417
  4. OMEPRAZOLE [Concomitant]
     Indication: GASTRIC ULCER
     Dosage: 20 MG, QD
     Route: 048
     Dates: start: 20090417
  5. SIMVASTATIN [Concomitant]
     Indication: MYOCARDIAL ISCHAEMIA
     Dosage: 40 MG, QD
     Route: 048
     Dates: start: 20090417

REACTIONS (4)
  - EXFOLIATIVE RASH [None]
  - PAIN [None]
  - PRURITUS [None]
  - STEVENS-JOHNSON SYNDROME [None]
